FAERS Safety Report 8862925 (Version 1)
Quarter: 2012Q4

REPORT INFORMATION
  Report Type: 
  Country: US (occurrence: US)
  Receive Date: 20121026
  Receipt Date: 20121026
  Transmission Date: 20130627
  Serious: No
  Sender: FDA-Public Use
  Company Number: US-ASTRAZENECA-2008UW19277

PATIENT
  Age: 84 Year
  Sex: Female
  Weight: 55.3 kg

DRUGS (3)
  1. CRESTOR [Suspect]
     Indication: BLOOD CHOLESTEROL INCREASED
     Route: 048
     Dates: start: 20080915
  2. CALCIUM PLUS VITAMIN D [Concomitant]
  3. KENALAR [Concomitant]

REACTIONS (8)
  - Sluggishness [Unknown]
  - Pain [Unknown]
  - Limb discomfort [Unknown]
  - Pulmonary valve stenosis [Unknown]
  - Sensation of heaviness [Unknown]
  - Iliotibial band syndrome [Unknown]
  - Dizziness [Unknown]
  - Muscle spasms [Unknown]
